FAERS Safety Report 4466772-5 (Version None)
Quarter: 2004Q4

REPORT INFORMATION
  Report Type: 
  Country: None (occurrence: None)
  Receive Date: 20041001
  Receipt Date: 20040921
  Transmission Date: 20050328
  Serious: Yes (Hospitalization)
  Sender: FDA-Public Use
  Company Number: 184291

PATIENT
  Age: 57 Year
  Sex: Female

DRUGS (1)
  1. AVONEX [Suspect]
     Indication: MULTIPLE SCLEROSIS
     Dosage: 30 MCG QM IM
     Route: 030
     Dates: end: 20030901

REACTIONS (8)
  - ABASIA [None]
  - COGNITIVE DISORDER [None]
  - COMMUNICATION DISORDER [None]
  - CONFUSIONAL STATE [None]
  - DYSSTASIA [None]
  - INCONTINENCE [None]
  - SPEECH DISORDER [None]
  - URINARY TRACT INFECTION [None]
